FAERS Safety Report 6936686-7 (Version None)
Quarter: 2010Q3

REPORT INFORMATION
  Report Type: 
  Country: None (occurrence: None)
  Receive Date: 20100823
  Receipt Date: 20100813
  Transmission Date: 20110219
  Serious: Yes (Hospitalization, Other)
  Sender: FDA-Public Use
  Company Number: US-AMGEN-KDL431415

PATIENT
  Sex: Male

DRUGS (2)
  1. ENBREL [Suspect]
     Indication: ANKYLOSING SPONDYLITIS
     Dates: start: 20100101
  2. METHOTREXATE [Concomitant]

REACTIONS (19)
  - ALOPECIA [None]
  - ANKYLOSING SPONDYLITIS [None]
  - BONE DISORDER [None]
  - CELLULITIS [None]
  - CONVULSION [None]
  - DIABETES MELLITUS [None]
  - HERPES ZOSTER [None]
  - HOSPITALISATION [None]
  - INCREASED TENDENCY TO BRUISE [None]
  - INFECTION SUSCEPTIBILITY INCREASED [None]
  - LOSS OF CONSCIOUSNESS [None]
  - NEUROPATHY PERIPHERAL [None]
  - ORTHOSTATIC HYPOTENSION [None]
  - PHARYNGITIS [None]
  - ROTATOR CUFF SYNDROME [None]
  - SIALOADENITIS [None]
  - TENDON DISORDER [None]
  - THROMBOSIS [None]
  - VISUAL IMPAIRMENT [None]
